FAERS Safety Report 9534613 (Version 1)
Quarter: 2013Q2

REPORT INFORMATION
  Report Type: Spontaneous
  Country: JP (occurrence: None)
  Receive Date: 20130403
  Receipt Date: 20130403
  Transmission Date: 20140414
  Serious: Yes (Hospitalization)
  Sender: FDA-Public Use
  Company Number: US-2012-10671

PATIENT
  Age: 56 Year
  Sex: Male

DRUGS (1)
  1. BUSULFEX (BUSULFAN) INJECTION [Suspect]
     Dosage: 45 MG X 1/6H, INTRAVENOUS
     Route: 042
     Dates: start: 20120513, end: 20120514

REACTIONS (3)
  - Nausea [None]
  - Vomiting [None]
  - Dizziness [None]
